FAERS Safety Report 17622942 (Version 1)
Quarter: 2020Q2

REPORT INFORMATION
  Report Type: Spontaneous
  Country: US (occurrence: US)
  Receive Date: 20200403
  Receipt Date: 20200403
  Transmission Date: 20200713
  Serious: Yes (Hospitalization)
  Sender: FDA-Public Use
  Company Number: US-HIKMA PHARMACEUTICALS USA INC.-US-H14001-20-01539

PATIENT
  Age: 65 Year
  Sex: Male

DRUGS (9)
  1. SERTRALINE [Suspect]
     Active Substance: SERTRALINE HYDROCHLORIDE
     Indication: DEPRESSION
     Route: 065
  2. WARFARIN [Concomitant]
     Active Substance: WARFARIN
     Indication: PRODUCT USED FOR UNKNOWN INDICATION
     Route: 065
  3. VALPROIC ACID. [Suspect]
     Active Substance: VALPROIC ACID
     Indication: POST STROKE SEIZURE
     Route: 065
  4. LAMOTRIGIN [Suspect]
     Active Substance: LAMOTRIGINE
     Route: 065
  5. VALPROIC ACID. [Suspect]
     Active Substance: VALPROIC ACID
     Route: 065
  6. LAMOTRIGIN [Suspect]
     Active Substance: LAMOTRIGINE
     Route: 065
  7. VITAMIN K [Concomitant]
     Active Substance: PHYTONADIONE
     Indication: PRODUCT USED FOR UNKNOWN INDICATION
     Route: 065
  8. LAMOTRIGIN [Suspect]
     Active Substance: LAMOTRIGINE
     Route: 065
  9. LAMOTRIGIN [Suspect]
     Active Substance: LAMOTRIGINE
     Indication: POST STROKE SEIZURE
     Route: 065

REACTIONS (2)
  - Drug interaction [Recovered/Resolved]
  - Delirium [Recovered/Resolved]
